FAERS Safety Report 6392557-9 (Version None)
Quarter: 2009Q4

REPORT INFORMATION
  Report Type: 
  Country: None (occurrence: None)
  Receive Date: 20091007
  Receipt Date: 20091001
  Transmission Date: 20100525
  Serious: Yes (Life-Threatening, Hospitalization)
  Sender: FDA-Public Use
  Company Number: US-GILEAD-2009-0024202

PATIENT
  Sex: Female

DRUGS (14)
  1. LETAIRIS [Suspect]
     Indication: PULMONARY ARTERIAL HYPERTENSION
     Route: 048
     Dates: start: 20090310
  2. PLAVIX [Concomitant]
  3. SIMVASTATIN [Concomitant]
  4. ASPIRIN [Concomitant]
  5. IMDUR [Concomitant]
  6. TORSEMIDE [Concomitant]
  7. METOPROLOL [Concomitant]
  8. METFORMIN [Concomitant]
  9. CLONAZEPAM [Concomitant]
  10. PREDNISONE [Concomitant]
  11. PRILOSEC [Concomitant]
  12. CALCIUM [Concomitant]
  13. POTASSIUM CHLORIDE [Concomitant]
  14. M.V.I. [Concomitant]

REACTIONS (2)
  - ACUTE MYOCARDIAL INFARCTION [None]
  - ORGANISING PNEUMONIA [None]
